FAERS Safety Report 8548009-0 (Version None)
Quarter: 2012Q3

REPORT INFORMATION
  Report Type: 
  Country: None (occurrence: None)
  Receive Date: 20120729
  Receipt Date: 20120718
  Transmission Date: 20120928
  Serious: Yes (Life-Threatening, Hospitalization, Disabling, Other)
  Sender: FDA-Public Use
  Company Number: PL-BRISTOL-MYERS SQUIBB COMPANY-16702219

PATIENT
  Age: 52 Year
  Sex: Male

DRUGS (6)
  1. ENOXAPARIN SODIUM [Concomitant]
     Route: 058
     Dates: start: 20120101
  2. KALIPOZ [Concomitant]
     Dosage: TABS
     Dates: start: 20120101
  3. ALLOPURINOL [Concomitant]
     Dosage: TABS
     Dates: start: 20120101
  4. POLPRAZOL [Concomitant]
     Dosage: TABS
     Dates: start: 20120101
  5. SPRYCEL [Suspect]
     Indication: CHRONIC MYELOID LEUKAEMIA
     Route: 048
     Dates: start: 20100316, end: 20120427
  6. TASIGNA [Suspect]
     Dates: start: 20120511

REACTIONS (4)
  - HAEMATOMA [None]
  - RESPIRATORY FAILURE [None]
  - PULMONARY EMBOLISM [None]
  - PULMONARY HYPERTENSION [None]
